FAERS Safety Report 15576520 (Version 1)
Quarter: 2018Q4

REPORT INFORMATION
  Report Type: Spontaneous
  Country: CN (occurrence: CN)
  Receive Date: 20181101
  Receipt Date: 20181101
  Transmission Date: 20190205
  Serious: Yes (Life-Threatening, Hospitalization)
  Sender: FDA-Public Use
  Company Number: CN-PFIZER INC-2018445035

PATIENT
  Age: 60 Year
  Sex: Male
  Weight: 59 kg

DRUGS (1)
  1. CELEBREX [Suspect]
     Active Substance: CELECOXIB
     Indication: GOUT
     Dosage: 0.2 G, 2X/DAY
     Route: 048
     Dates: start: 20180101, end: 20180820

REACTIONS (5)
  - Abdominal pain [Recovering/Resolving]
  - Anaemia [Recovering/Resolving]
  - Dizziness [Recovering/Resolving]
  - Melaena [Recovering/Resolving]
  - Asthenia [Recovering/Resolving]

NARRATIVE: CASE EVENT DATE: 20180820
